FAERS Safety Report 12784377 (Version 1)
Quarter: 2016Q3

REPORT INFORMATION
  Report Type: Spontaneous
  Country: DE (occurrence: DE)
  Receive Date: 20160927
  Receipt Date: 20160927
  Transmission Date: 20161109
  Serious: Yes (Death, Life-Threatening, Hospitalization, Other)
  Sender: FDA-Public Use
  Company Number: DE-BEH-SAGL/02/24/GFR

PATIENT
  Age: 70 Year
  Sex: Female
  Weight: 45 kg

DRUGS (4)
  1. SANDOGLOBULIN [Suspect]
     Active Substance: HUMAN IMMUNOGLOBULIN G
     Indication: IMMUNODEFICIENCY
     Dosage: DAILY DOSE QUANTITY: 20, DAILY DOSE UNIT: G
     Route: 042
     Dates: start: 20011215, end: 20020206
  2. SANDOGLOBULIN [Suspect]
     Active Substance: HUMAN IMMUNOGLOBULIN G
  3. SANDOGLOBULIN [Suspect]
     Active Substance: HUMAN IMMUNOGLOBULIN G
  4. FORTECORTIN [Concomitant]
     Active Substance: DEXAMETHASONE

REACTIONS (5)
  - Tachycardia [Unknown]
  - Disease progression [Fatal]
  - Respiratory failure [Unknown]
  - Anaphylactic reaction [Recovering/Resolving]
  - Asthenia [Unknown]

NARRATIVE: CASE EVENT DATE: 200112
